FAERS Safety Report 6983362-0 (Version None)
Quarter: 2010Q3

REPORT INFORMATION
  Report Type: 
  Country: None (occurrence: None)
  Receive Date: 20100914
  Receipt Date: 20100903
  Transmission Date: 20110219
  Serious: Yes (Hospitalization)
  Sender: FDA-Public Use
  Company Number: PHHY2010CO58846

PATIENT
  Sex: Male

DRUGS (2)
  1. RASILEZ [Suspect]
     Indication: HYPERTENSION
     Dosage: 300MG 1 TABLET PER DAY
     Route: 048
     Dates: start: 20100722
  2. DIOVAN [Suspect]
     Indication: HYPERTENSION
     Dosage: 320 MG, 1 TABLET PER DAY
     Route: 048
     Dates: start: 20100722

REACTIONS (2)
  - LASER THERAPY [None]
  - NEPHROLITHIASIS [None]
